FAERS Safety Report 6898614-2 (Version None)
Quarter: 2010Q3

REPORT INFORMATION
  Report Type: 
  Country: None (occurrence: None)
  Receive Date: 20100802
  Receipt Date: 20071107
  Transmission Date: 20110219
  Serious: No
  Sender: FDA-Public Use
  Company Number: US-PFIZER INC-2007094551

PATIENT
  Sex: Female
  Weight: 56.8 kg

DRUGS (7)
  1. LYRICA [Suspect]
     Indication: FIBROMYALGIA
     Dates: start: 20071102
  2. CYMBALTA [Concomitant]
  3. LITHIUM [Concomitant]
  4. THYROID TAB [Concomitant]
  5. LORAZEPAM [Concomitant]
  6. KEPPRA [Concomitant]
  7. RELAFEN [Concomitant]

REACTIONS (6)
  - COGNITIVE DISORDER [None]
  - DIZZINESS [None]
  - EUPHORIC MOOD [None]
  - FATIGUE [None]
  - FEAR [None]
  - SOMNOLENCE [None]
